FAERS Safety Report 7596208-7 (Version None)
Quarter: 2011Q3

REPORT INFORMATION
  Report Type: 
  Country: None (occurrence: None)
  Receive Date: 20110707
  Receipt Date: 20110622
  Transmission Date: 20111222
  Serious: Yes (Death)
  Sender: FDA-Public Use
  Company Number: GB-WATSON-2011-09996

PATIENT
  Sex: Male

DRUGS (3)
  1. CHEMOTHERAPY [Concomitant]
     Indication: SKIN CANCER
     Route: 065
  2. APREPITANT [Suspect]
     Indication: ANTIEMETIC SUPPORTIVE CARE
     Route: 065
  3. FENTANYL [Suspect]
     Indication: PRODUCT USED FOR UNKNOWN INDICATION
     Route: 065

REACTIONS (2)
  - DRUG INTERACTION [None]
  - DEATH [None]
